FAERS Safety Report 15119685 (Version 1)
Quarter: 2018Q3

REPORT INFORMATION
  Report Type: Spontaneous
  Country: DE (occurrence: DE)
  Receive Date: 20180709
  Receipt Date: 20180709
  Transmission Date: 20181010
  Serious: Yes (Life-Threatening, Hospitalization)
  Sender: FDA-Public Use
  Company Number: DE-ELI_LILLY_AND_COMPANY-DE201807001905

PATIENT
  Age: 57 Year
  Sex: Male
  Weight: 87.7 kg

DRUGS (4)
  1. JARDIANCE [Suspect]
     Active Substance: EMPAGLIFLOZIN
     Indication: TYPE 2 DIABETES MELLITUS
     Dosage: 10 MG, DAILY
     Route: 048
     Dates: start: 20160530, end: 20160607
  2. METFORMIN [Concomitant]
     Active Substance: METFORMIN HYDROCHLORIDE
     Indication: PRODUCT USED FOR UNKNOWN INDICATION
     Dosage: 1000 MG, DAILY
     Route: 065
  3. JANUVIA [Concomitant]
     Active Substance: SITAGLIPTIN PHOSPHATE
     Indication: TYPE 2 DIABETES MELLITUS
     Dosage: 100 MG, DAILY
     Route: 048
  4. TRULICITY [Suspect]
     Active Substance: DULAGLUTIDE
     Indication: TYPE 2 DIABETES MELLITUS
     Dosage: 1.5 MG, DAILY
     Route: 058
     Dates: start: 20160530, end: 20160607

REACTIONS (13)
  - Ketonuria [Unknown]
  - Nausea [Recovered/Resolved]
  - Inappropriate schedule of drug administration [Recovered/Resolved]
  - Anaemia [Unknown]
  - Blood parathyroid hormone increased [Unknown]
  - Ketoacidosis [Recovered/Resolved]
  - Hypercalcaemia [Recovered/Resolved]
  - Tachypnoea [Unknown]
  - Altered state of consciousness [Unknown]
  - Haemolytic anaemia [Recovered/Resolved]
  - Overdose [Recovered/Resolved]
  - Hyperparathyroidism [Unknown]
  - Vomiting [Unknown]

NARRATIVE: CASE EVENT DATE: 20160530
